FAERS Safety Report 8076401-X (Version None)
Quarter: 2012Q1

REPORT INFORMATION
  Report Type: 
  Country: None (occurrence: None)
  Receive Date: 20120127
  Receipt Date: 20120127
  Transmission Date: 20120608
  Serious: Yes (Life-Threatening, Other)
  Sender: FDA-Public Use
  Company Number: None

PATIENT
  Age: 52 Year
  Sex: Female
  Weight: 68.038 kg

DRUGS (1)
  1. FLUOXETINE [Suspect]
     Indication: DEPRESSION
     Dosage: 2 PILL
     Route: 048
     Dates: start: 20110401, end: 20110411

REACTIONS (9)
  - SCREAMING [None]
  - PRODUCT SUBSTITUTION ISSUE [None]
  - CRYING [None]
  - FEELING ABNORMAL [None]
  - AGGRESSION [None]
  - FEAR [None]
  - DEPRESSION [None]
  - AGITATION [None]
  - INSOMNIA [None]
